FAERS Safety Report 9529375 (Version 1)
Quarter: 2013Q1

REPORT INFORMATION
  Report Type: Spontaneous
  Country: US (occurrence: None)
  Receive Date: 20130318
  Receipt Date: 20130318
  Transmission Date: 20140127
  Serious: Yes (Other)
  Sender: FDA-Public Use
  Company Number: 1212USA005522

PATIENT
  Age: 53 Year
  Sex: Female

DRUGS (3)
  1. PEGINTRON (PEGINTERFERON ALFA-2B) POWDER FOR INJECTION [Suspect]
     Indication: HEPATITIS C
     Dosage: REDIPEN
     Dates: start: 20121130
  2. RIBAVIRIN (RIBAVIRIN) TABLET, 200 MG [Suspect]
     Indication: HEPATITIS C
     Dates: start: 20121130
  3. VICTRELIS (BOCEPREVIR) CAPSULE [Suspect]
     Indication: HEPATITIS C
     Dates: start: 20121228

REACTIONS (12)
  - Pneumonia [None]
  - Nausea [None]
  - Thrombocytopenia [None]
  - Asthenia [None]
  - Fatigue [None]
  - Malaise [None]
  - Vomiting [None]
  - Influenza [None]
  - Sinusitis [None]
  - Cough [None]
  - Epistaxis [None]
  - Ear disorder [None]
